FAERS Safety Report 5159251-3 (Version None)
Quarter: 2006Q4

REPORT INFORMATION
  Report Type: 
  Country: None (occurrence: None)
  Receive Date: 20061120
  Receipt Date: 20061107
  Transmission Date: 20070319
  Serious: Yes (Other)
  Sender: FDA-Public Use
  Company Number: 230765

PATIENT
  Sex: Male

DRUGS (1)
  1. MABTHERA (RITUXIMAB)CONC FOR SOLUTION FOR INFUSION [Suspect]
     Indication: CRYOGLOBULINAEMIA
     Dosage: 1000 UG, UNK; INTRAVENOUS
     Route: 042
     Dates: start: 20060908, end: 20060922

REACTIONS (3)
  - BLOOD CREATININE INCREASED [None]
  - PROTEINURIA [None]
  - RENAL IMPAIRMENT [None]
